FAERS Safety Report 11918856 (Version 2)
Quarter: 2016Q3

REPORT INFORMATION
  Report Type: Spontaneous
  Country: US (occurrence: US)
  Receive Date: 20160115
  Receipt Date: 20160907
  Transmission Date: 20161109
  Serious: Yes (Other)
  Sender: FDA-Public Use
  Company Number: US-JNJFOC-20151204858

PATIENT
  Age: 38 Year
  Sex: Female
  Weight: 73.03 kg

DRUGS (2)
  1. LEVAQUIN [Suspect]
     Active Substance: LEVOFLOXACIN
     Indication: URINARY TRACT INFECTION
     Dosage: 500 MG /100 ML IVPB
     Route: 042
     Dates: start: 20030909
  2. LEVAQUIN [Suspect]
     Active Substance: LEVOFLOXACIN
     Indication: URINARY TRACT INFECTION
     Dosage: 500 MG /100 ML IVPB
     Route: 042
     Dates: start: 20050628, end: 20050702

REACTIONS (2)
  - Musculoskeletal pain [Unknown]
  - Neuropathy peripheral [Unknown]

NARRATIVE: CASE EVENT DATE: 200506
